FAERS Safety Report 21300320 (Version 1)
Quarter: 2022Q3

REPORT INFORMATION
  Report Type: Spontaneous
  Country: CN (occurrence: None)
  Receive Date: 20220907
  Receipt Date: 20220907
  Transmission Date: 20221027
  Serious: Yes (Other)
  Sender: FDA-Public Use
  Company Number: 2022A304202

PATIENT
  Age: 23153 Day
  Sex: Male

DRUGS (3)
  1. ROSUVASTATIN CALCIUM [Suspect]
     Active Substance: ROSUVASTATIN CALCIUM
     Indication: Neuralgia
     Route: 048
     Dates: start: 20220721, end: 20220727
  2. EZETIMIBE [Suspect]
     Active Substance: EZETIMIBE
     Indication: Neuralgia
     Route: 048
     Dates: start: 20220721, end: 20220727
  3. ATORVASTATIN CALCIUM [Suspect]
     Active Substance: ATORVASTATIN CALCIUM
     Indication: Neuralgia
     Route: 048
     Dates: start: 20220717, end: 20220720

REACTIONS (1)
  - Liver injury [Recovering/Resolving]

NARRATIVE: CASE EVENT DATE: 20220725
